FAERS Safety Report 7555759-1 (Version None)
Quarter: 2011Q2

REPORT INFORMATION
  Report Type: 
  Country: None (occurrence: None)
  Receive Date: 20110618
  Receipt Date: 20090809
  Transmission Date: 20111010
  Serious: Yes (Other)
  Sender: FDA-Public Use
  Company Number: US-BAYER-200929361NA

PATIENT
  Age: 67 Year
  Sex: Male
  Weight: 69 kg

DRUGS (9)
  1. CAPTOPRIL [Concomitant]
  2. ANCEF [Concomitant]
     Dosage: 2 G, UNK
     Route: 042
     Dates: start: 20050316
  3. ACETYLSALICYLIC ACID SRT [Concomitant]
     Dosage: 325 MG, UNK
     Route: 048
  4. VANCOMYCIN [Concomitant]
  5. TRASYLOL [Suspect]
     Indication: CORONARY ARTERY BYPASS
     Dosage: 200 ML; FOLLOWED BY DRIP OF 50ML/HR
     Route: 042
     Dates: start: 20050316
  6. LASIX [Concomitant]
     Dosage: 20 MG, UNK
     Route: 048
  7. PRINIVIL [Concomitant]
     Dosage: 5 MG, UNK
     Route: 048
     Dates: start: 20050315
  8. HEPARIN [Concomitant]
     Dosage: UNK
     Route: 042
     Dates: start: 20050316
  9. TYLENOL W/ CODEINE NO. 3 [Concomitant]
     Dosage: AS NEEDED FOR PAIN
     Route: 048
     Dates: start: 20050315

REACTIONS (12)
  - EMOTIONAL DISTRESS [None]
  - RENAL INJURY [None]
  - RENAL FAILURE [None]
  - RENAL IMPAIRMENT [None]
  - INJURY [None]
  - ANHEDONIA [None]
  - UNEVALUABLE EVENT [None]
  - STRESS [None]
  - FEAR [None]
  - ANXIETY [None]
  - MULTI-ORGAN FAILURE [None]
  - PAIN [None]
